FAERS Safety Report 12178918 (Version 1)
Quarter: 2016Q1

REPORT INFORMATION
  Report Type: Spontaneous
  Country: US (occurrence: None)
  Receive Date: 20160314
  Receipt Date: 20160314
  Transmission Date: 20160526
  Serious: Yes (Other)
  Sender: FDA-Public Use
  Company Number: None

PATIENT
  Age: 31 Year
  Sex: Female
  Weight: 76.66 kg

DRUGS (5)
  1. BENTYL [Concomitant]
     Active Substance: DICYCLOMINE HYDROCHLORIDE
  2. IBUPROFFEN [Concomitant]
  3. TAMIFLU [Suspect]
     Active Substance: OSELTAMIVIR PHOSPHATE
     Indication: INFLUENZA
     Dosage: 1 PILL TWICE A DAY FOR 5 DAYS TWICE DAILY TAKEN BY MOUTH
     Route: 048
     Dates: start: 20160312, end: 20160312
  4. MIRCETTE [Concomitant]
     Active Substance: DESOGESTREL\ETHINYL ESTRADIOL
  5. TYLENOL [Concomitant]
     Active Substance: ACETAMINOPHEN

REACTIONS (6)
  - Blood pressure decreased [None]
  - Lip discolouration [None]
  - Loss of consciousness [None]
  - Pallor [None]
  - Asthenia [None]
  - Skin discolouration [None]

NARRATIVE: CASE EVENT DATE: 20160312
